FAERS Safety Report 25728635 (Version 1)
Quarter: 2025Q3

REPORT INFORMATION
  Report Type: Spontaneous
  Country: US (occurrence: None)
  Receive Date: 20250826
  Receipt Date: 20250826
  Transmission Date: 20251020
  Serious: No
  Sender: ALKERMES
  Company Number: US-ALKERMES INC.-ALK-2025-002209

PATIENT
  Age: 50 Year
  Sex: Male

DRUGS (3)
  1. VIVITROL [Suspect]
     Active Substance: NALTREXONE
     Indication: Alcohol abuse
  2. VIVITROL [Suspect]
     Active Substance: NALTREXONE
     Indication: Alcoholism
  3. VIVITROL [Suspect]
     Active Substance: NALTREXONE
     Indication: Drug dependence

REACTIONS (1)
  - Product preparation error [Recovered/Resolved]

NARRATIVE: CASE EVENT DATE: 20250811
